FAERS Safety Report 15824837 (Version 1)
Quarter: 2019Q1

REPORT INFORMATION
  Report Type: Spontaneous
  Country: US (occurrence: US)
  Receive Date: 20190115
  Receipt Date: 20190115
  Transmission Date: 20190417
  Serious: No
  Sender: FDA-Public Use
  Company Number: US-EMD SERONO-9063714

PATIENT
  Sex: Female

DRUGS (1)
  1. REBIF [Suspect]
     Active Substance: INTERFERON BETA-1A
     Indication: MULTIPLE SCLEROSIS

REACTIONS (7)
  - Acne [Unknown]
  - Nausea [Unknown]
  - Skin discolouration [Unknown]
  - Multiple sclerosis relapse [Unknown]
  - Abnormal behaviour [Unknown]
  - Photosensitivity reaction [Unknown]
  - Keratoacanthoma [Unknown]
